FAERS Safety Report 8960529 (Version 1)
Quarter: 2012Q4

REPORT INFORMATION
  Report Type: Spontaneous
  Country: DE (occurrence: None)
  Receive Date: 20121203
  Receipt Date: 20121203
  Transmission Date: 20130627
  Serious: No
  Sender: FDA-Public Use
  Company Number: DE-AGG-11-2012-0521

PATIENT
  Age: 46 Year
  Sex: Male

DRUGS (2)
  1. TIROFIBAN HYDROCHLORIDE [Suspect]
     Indication: THORACOTOMY
     Dosage: 0.1ug/kg x 1, 1x a minute
     Route: 042
     Dates: start: 20121031, end: 20121105
  2. MEDICINAL PRODUCT: BRILIQUE [Concomitant]

REACTIONS (1)
  - No adverse event [None]
